FAERS Safety Report 7158047-0 (Version None)
Quarter: 2010Q4

REPORT INFORMATION
  Report Type: 
  Country: None (occurrence: None)
  Receive Date: 20101214
  Receipt Date: 20100409
  Transmission Date: 20110411
  Serious: No
  Sender: FDA-Public Use
  Company Number: US-ASTRAZENECA-2010SE15716

PATIENT
  Age: 77 Year
  Sex: Male
  Weight: 81.6 kg

DRUGS (4)
  1. CRESTOR [Suspect]
     Indication: HIGH DENSITY LIPOPROTEIN DECREASED
     Route: 048
     Dates: start: 20081101, end: 20090101
  2. CRESTOR [Suspect]
     Route: 048
  3. CARVEDILOL [Concomitant]
  4. PLAVIX [Concomitant]

REACTIONS (2)
  - BLOOD GLUCOSE INCREASED [None]
  - WRONG TECHNIQUE IN DRUG USAGE PROCESS [None]
